FAERS Safety Report 5356219-9 (Version None)
Quarter: 2007Q2

REPORT INFORMATION
  Report Type: 
  Country: None (occurrence: None)
  Receive Date: 20070612
  Receipt Date: 20070531
  Transmission Date: 20071010
  Serious: Yes (Death)
  Sender: FDA-Public Use
  Company Number: JP-PFIZER INC-2007041451

PATIENT
  Age: 80 Year
  Sex: Male
  Weight: 36.8 kg

DRUGS (4)
  1. VFEND [Suspect]
     Indication: BRONCHOPULMONARY ASPERGILLOSIS
     Route: 042
     Dates: start: 20070122, end: 20070123
  2. THEOPHYLLINE [Concomitant]
     Route: 048
  3. SPIRIVA [Concomitant]
  4. SEREVENT [Concomitant]

REACTIONS (2)
  - DEPRESSED LEVEL OF CONSCIOUSNESS [None]
  - MULTI-ORGAN FAILURE [None]
